FAERS Safety Report 8948401 (Version 1)
Quarter: 2012Q4

REPORT INFORMATION
  Report Type: Spontaneous
  Country: US (occurrence: None)
  Receive Date: 20120928
  Receipt Date: 20120928
  Transmission Date: 20130627
  Serious: Yes (Hospitalization)
  Sender: FDA-Public Use
  Company Number: None

PATIENT
  Age: 76 Year
  Sex: Male
  Weight: 87.3 kg

DRUGS (18)
  1. COUMADIN [Suspect]
     Indication: CORONARY ARTERY DISEASE
     Dosage: 5MG DAILY PO
chronic
     Route: 048
  2. COUMADIN [Suspect]
     Indication: DEEP VEIN THROMBOSIS
     Dosage: 5MG DAILY PO
chronic
     Route: 048
  3. ASA [Suspect]
     Indication: CORONARY ARTERY DISEASE
     Dosage: 81MG DAILY PO
chronic
     Route: 048
  4. ASA [Suspect]
     Indication: DEEP VEIN THROMBOSIS
     Dosage: 81MG DAILY PO
chronic
     Route: 048
  5. GARLIC [Suspect]
     Dosage: 1000mg po daily
     Route: 048
  6. TYLENOL [Concomitant]
  7. AMIODARONE [Concomitant]
  8. AMITRIPTYLINE [Concomitant]
  9. LIPITOR [Concomitant]
  10. VIT D [Concomitant]
  11. CLONAZEPAM [Concomitant]
  12. COLACE [Concomitant]
  13. GLUCOSAMINE [Concomitant]
  14. HYDROXYUREA [Concomitant]
  15. MEGACE [Concomitant]
  16. FLAXSEED [Concomitant]
  17. SENIOR MVI [Concomitant]
  18. PRILOSEC [Concomitant]

REACTIONS (3)
  - Epistaxis [None]
  - International normalised ratio increased [None]
  - Drug interaction [None]
